FAERS Safety Report 23016287 (Version 2)
Quarter: 2023Q4

REPORT INFORMATION
  Report Type: Spontaneous
  Country: KR (occurrence: KR)
  Receive Date: 20231002
  Receipt Date: 20231004
  Transmission Date: 20240109
  Serious: Yes (Death, Other)
  Sender: FDA-Public Use
  Company Number: KR-009507513-2310KOR000202

PATIENT
  Age: 68 Year
  Sex: Female
  Weight: 56.1 kg

DRUGS (9)
  1. KEYTRUDA [Suspect]
     Active Substance: PEMBROLIZUMAB
     Indication: Endometrial cancer
     Dosage: 200 MG, EVERY 3 WEEKS, IV
     Route: 042
     Dates: start: 20221129, end: 20221129
  2. KEYTRUDA [Suspect]
     Active Substance: PEMBROLIZUMAB
     Dosage: 200 MG, EVERY 3 WEEKS, IV
     Route: 042
     Dates: start: 20221221, end: 20221221
  3. KEYTRUDA [Suspect]
     Active Substance: PEMBROLIZUMAB
     Dosage: 200 MG, EVERY 3 WEEKS, IV
     Route: 042
     Dates: start: 20230111, end: 20230111
  4. KEYTRUDA [Suspect]
     Active Substance: PEMBROLIZUMAB
     Dosage: 200 MG, EVERY 3 WEEKS, IV
     Route: 042
     Dates: start: 20230201, end: 20230201
  5. KEYTRUDA [Suspect]
     Active Substance: PEMBROLIZUMAB
     Dosage: 200 MG, EVERY 3 WEEKS, IV
     Route: 042
     Dates: start: 20230222, end: 20230222
  6. KEYTRUDA [Suspect]
     Active Substance: PEMBROLIZUMAB
     Dosage: 200 MG, EVERY 3 WEEKS, IV
     Route: 042
     Dates: start: 20230315, end: 20230315
  7. LENVATINIB MESYLATE [Suspect]
     Active Substance: LENVATINIB MESYLATE
     Indication: Endometrial cancer
     Dosage: 20 MG, ONCE A DAY, ORAL
     Route: 048
     Dates: start: 20221129, end: 20221228
  8. LENVATINIB MESYLATE [Suspect]
     Active Substance: LENVATINIB MESYLATE
     Dosage: 10 MG, ONCE A DAY, ORAL
     Route: 048
     Dates: start: 20230109, end: 20230223
  9. LENVATINIB MESYLATE [Suspect]
     Active Substance: LENVATINIB MESYLATE
     Dosage: 10 MG, ONCE A DAY, ORAL
     Route: 048
     Dates: start: 20230312, end: 20230322

REACTIONS (3)
  - Death [Fatal]
  - Mental fatigue [Unknown]
  - Hypercalcaemia [Unknown]

NARRATIVE: CASE EVENT DATE: 20230101
